FAERS Safety Report 4711706-9 (Version None)
Quarter: 2005Q2

REPORT INFORMATION
  Report Type: 
  Country: None (occurrence: None)
  Receive Date: 20050629
  Receipt Date: 20050429
  Transmission Date: 20051028
  Serious: No
  Sender: FDA-Public Use
  Company Number: 05P-163-0298799-00

PATIENT
  Age: 52 Year
  Sex: Male
  Weight: 68.0396 kg

DRUGS (9)
  1. HUMIRA [Suspect]
     Indication: RHEUMATOID ARTHRITIS
     Dosage: 40 MG, 1 IN 2 WK, SUBCUTANEOUS
     Route: 058
     Dates: start: 20040101, end: 20050124
  2. HUMIRA [Suspect]
     Indication: RHEUMATOID ARTHRITIS
     Dosage: 40 MG, 1 IN 2 WK, SUBCUTANEOUS
     Route: 058
     Dates: start: 20050427
  3. METHOTREXATE [Concomitant]
  4. PREDNISONE [Concomitant]
  5. VOLTAREN [Concomitant]
  6. FOLIC ACID [Concomitant]
  7. HYDROCODONE BITARTRATE [Concomitant]
  8. DARVOCET [Concomitant]
  9. MARIPEX [Concomitant]

REACTIONS (1)
  - TENDON RUPTURE [None]
